FAERS Safety Report 7980696-8 (Version None)
Quarter: 2011Q4

REPORT INFORMATION
  Report Type: 
  Country: None (occurrence: None)
  Receive Date: 20111214
  Receipt Date: 20111205
  Transmission Date: 20120403
  Serious: Yes (Hospitalization, Other)
  Sender: FDA-Public Use
  Company Number: US-ELI_LILLY_AND_COMPANY-US201006005102

PATIENT
  Sex: Female

DRUGS (4)
  1. HUMULIN 70/30 [Suspect]
     Indication: TYPE 1 DIABETES MELLITUS
     Dosage: 50 U, 2/D
  2. HUMULIN 70/30 [Suspect]
     Dosage: 50 U, 2/D
  3. HUMULIN 70/30 [Suspect]
     Dosage: 50 U, 2/D
  4. SYMLIN [Concomitant]

REACTIONS (7)
  - PALPITATIONS [None]
  - POOR QUALITY DRUG ADMINISTERED [None]
  - MALAISE [None]
  - MYOCARDIAL INFARCTION [None]
  - FATIGUE [None]
  - CORONARY ARTERY OCCLUSION [None]
  - BLOOD GLUCOSE INCREASED [None]
